FAERS Safety Report 7813717-3 (Version None)
Quarter: 2011Q4

REPORT INFORMATION
  Report Type: 
  Country: None (occurrence: None)
  Receive Date: 20111011
  Receipt Date: 20110927
  Transmission Date: 20120403
  Serious: Yes (Other)
  Sender: FDA-Public Use
  Company Number: DSA_47779_2011

PATIENT
  Age: 82 Year
  Sex: Female

DRUGS (2)
  1. WELLBUTRIN XL [Suspect]
     Indication: DYSKINESIA
     Dosage: 150 MG, DAILY (300 MG FREQUENCY UNKNOWN) (DECREASED DOSE (UNSPECIFIED)(1 TABLET DAILY)
     Dates: start: 20110901
  2. WELLBUTRIN XL [Suspect]
     Indication: DYSKINESIA
     Dosage: 150 MG, DAILY (300 MG FREQUENCY UNKNOWN) (DECREASED DOSE (UNSPECIFIED)(1 TABLET DAILY)
     Dates: start: 20110728, end: 20110731

REACTIONS (6)
  - DRY MOUTH [None]
  - MASKED FACIES [None]
  - THIRST [None]
  - INSOMNIA [None]
  - AGGRESSION [None]
  - ASTHENIA [None]
